FAERS Safety Report 6555859-9 (Version None)
Quarter: 2010Q1

REPORT INFORMATION
  Report Type: 
  Country: None (occurrence: None)
  Receive Date: 20100128
  Receipt Date: 20100125
  Transmission Date: 20100710
  Serious: Yes (Death)
  Sender: FDA-Public Use
  Company Number: CHPA2010DE01939

PATIENT
  Age: 97 Year
  Sex: Female

DRUGS (1)
  1. SCOPOLAMINE [Suspect]
     Indication: PALLIATIVE CARE
     Dosage: UNK, UNK
     Route: 062
     Dates: start: 20100101

REACTIONS (2)
  - DEATH [None]
  - OFF LABEL USE [None]
